FAERS Safety Report 25235433 (Version 1)
Quarter: 2025Q2

REPORT INFORMATION
  Report Type: Spontaneous
  Country: US (occurrence: US)
  Receive Date: 20250424
  Receipt Date: 20250424
  Transmission Date: 20250717
  Serious: No
  Sender: PADAGIS
  Company Number: US-PADAGIS-2025PAD00430

PATIENT

DRUGS (1)
  1. ESTRADIOL VAGINAL [Suspect]
     Active Substance: ESTRADIOL
     Indication: Urinary tract disorder
     Route: 065

REACTIONS (2)
  - Underdose [Unknown]
  - Product use in unapproved indication [Unknown]
